FAERS Safety Report 25723350 (Version 1)
Quarter: 2025Q3

REPORT INFORMATION
  Report Type: Spontaneous
  Country: US (occurrence: US)
  Receive Date: 20250825
  Receipt Date: 20250825
  Transmission Date: 20251020
  Serious: Yes (Hospitalization, Other)
  Sender: NOVO NORDISK
  Company Number: US-NOVOPROD-1504979

PATIENT
  Age: 77 Year
  Sex: Male

DRUGS (1)
  1. OZEMPIC [Suspect]
     Active Substance: SEMAGLUTIDE
     Indication: Type 2 diabetes mellitus
     Dosage: 0.25 MG, QW
     Route: 058
     Dates: start: 2023

REACTIONS (10)
  - Loss of consciousness [Recovered/Resolved]
  - Catheter placement [Recovered/Resolved]
  - Limb operation [Recovered/Resolved]
  - Limb operation [Recovered/Resolved]
  - Transfusion [Recovered/Resolved]
  - Chest wall operation [Recovered/Resolved]
  - Catheter removal [Unknown]
  - Renal disorder [Not Recovered/Not Resolved]
  - Dizziness [Recovered/Resolved]
  - Nausea [Recovered/Resolved]

NARRATIVE: CASE EVENT DATE: 20241201
